FAERS Safety Report 13001650 (Version 1)
Quarter: 2016Q4

REPORT INFORMATION
  Report Type: Spontaneous
  Country: US (occurrence: US)
  Receive Date: 20161205
  Receipt Date: 20161205
  Transmission Date: 20170207
  Serious: No
  Sender: FDA-Public Use
  Company Number: None

PATIENT
  Age: 87 Year
  Sex: Female
  Weight: 69.4 kg

DRUGS (15)
  1. FUROSEMIDE. [Concomitant]
     Active Substance: FUROSEMIDE
  2. NORCO [Concomitant]
     Active Substance: ACETAMINOPHEN\HYDROCODONE BITARTRATE
  3. PRAVASTATIN. [Concomitant]
     Active Substance: PRAVASTATIN
  4. ASPIRIN. [Concomitant]
     Active Substance: ASPIRIN
  5. DOCUSATE SODIUM. [Concomitant]
     Active Substance: DOCUSATE SODIUM
  6. WARFARIN [Suspect]
     Active Substance: WARFARIN
     Indication: CEREBROVASCULAR ACCIDENT
     Dosage: ?          OTHER FREQUENCY:SEE NARRATIVE;?
     Route: 048
     Dates: start: 20161013, end: 20161123
  7. LEXAPRO [Concomitant]
     Active Substance: ESCITALOPRAM OXALATE
  8. TESSALON [Concomitant]
     Active Substance: BENZONATATE
  9. DIGOXIN. [Concomitant]
     Active Substance: DIGOXIN
  10. OMEPRAZOLE. [Concomitant]
     Active Substance: OMEPRAZOLE
  11. WARFARIN [Suspect]
     Active Substance: WARFARIN
     Indication: DEEP VEIN THROMBOSIS
     Dosage: ?          OTHER FREQUENCY:SEE NARRATIVE;?
     Route: 048
     Dates: start: 20161013, end: 20161123
  12. FLUOXETINE [Concomitant]
     Active Substance: FLUOXETINE HYDROCHLORIDE
  13. PROMETHAZINE [Concomitant]
     Active Substance: PROMETHAZINE\PROMETHAZINE HYDROCHLORIDE
  14. WARFARIN [Suspect]
     Active Substance: WARFARIN
     Indication: VENA CAVA FILTER INSERTION
     Dosage: ?          OTHER FREQUENCY:SEE NARRATIVE;?
     Route: 048
     Dates: start: 20161013, end: 20161123
  15. BACLOFEN. [Concomitant]
     Active Substance: BACLOFEN

REACTIONS (5)
  - Incorrect dose administered [None]
  - Drug effect variable [None]
  - International normalised ratio decreased [None]
  - Product quality issue [None]
  - Therapy change [None]

NARRATIVE: CASE EVENT DATE: 20161123
